FAERS Safety Report 9058429 (Version 1)
Quarter: 2013Q1

REPORT INFORMATION
  Report Type: Spontaneous
  Country: US (occurrence: None)
  Receive Date: 20130205
  Receipt Date: 20130205
  Transmission Date: 20140127
  Serious: Yes (Other)
  Sender: FDA-Public Use
  Company Number: None

PATIENT
  Sex: Female

DRUGS (1)
  1. ZOLINZA [Suspect]
     Dosage: 200MG QAM AND 100MG QPM PO

REACTIONS (4)
  - Fatigue [None]
  - Neuropathy peripheral [None]
  - Diarrhoea [None]
  - Headache [None]
